FAERS Safety Report 14678633 (Version 1)
Quarter: 2018Q1

REPORT INFORMATION
  Report Type: Spontaneous
  Country: FR (occurrence: FR)
  Receive Date: 20180326
  Receipt Date: 20180326
  Transmission Date: 20180509
  Serious: Yes (Other)
  Sender: FDA-Public Use
  Company Number: FR-MERCK KGAA-2044493

PATIENT
  Sex: Female

DRUGS (1)
  1. NOVOTHYROX [Suspect]
     Active Substance: LEVOTHYROXINE SODIUM
     Indication: PRODUCT USED FOR UNKNOWN INDICATION

REACTIONS (14)
  - Stress [None]
  - Fatigue [None]
  - Disturbance in attention [None]
  - Ligament sprain [None]
  - Epilepsy [None]
  - Irritability [None]
  - Low density lipoprotein increased [None]
  - Blood thyroid stimulating hormone increased [None]
  - Alopecia [None]
  - Insomnia [None]
  - Pain in extremity [None]
  - Eye pain [None]
  - Weight increased [None]
  - Palpitations [None]

NARRATIVE: CASE EVENT DATE: 20171024
